FAERS Safety Report 5230807-2 (Version None)
Quarter: 2007Q1

REPORT INFORMATION
  Report Type: 
  Country: None (occurrence: None)
  Receive Date: 20070202
  Receipt Date: 20070122
  Transmission Date: 20070707
  Serious: Yes (Life-Threatening)
  Sender: FDA-Public Use
  Company Number: GXKR2007NL00996

PATIENT
  Age: 41 Year
  Sex: Female

DRUGS (2)
  1. AMITRIPTYLINE (NGX) (AMITRIPTYLINE) TABLET, 75MG [Suspect]
     Indication: SUICIDE ATTEMPT
     Dosage: 11250 MG, ONCE/SINGLE, ORAL
     Route: 048
  2. DICLOFENAC (NGX) (DICLOFENAC) TABLET, 50MG [Suspect]
     Indication: SUICIDE ATTEMPT
     Dosage: 1500 MG, ONCE/SINGLE, ORAL
     Route: 048

REACTIONS (19)
  - ALANINE AMINOTRANSFERASE INCREASED [None]
  - AREFLEXIA [None]
  - ASPARTATE AMINOTRANSFERASE INCREASED [None]
  - BLOOD CREATININE INCREASED [None]
  - COMA [None]
  - DRUG TOXICITY [None]
  - HYPOTHERMIA [None]
  - INTENTIONAL OVERDOSE [None]
  - MEAN ARTERIAL PRESSURE DECREASED [None]
  - METABOLIC ACIDOSIS [None]
  - MYDRIASIS [None]
  - PNEUMONIA [None]
  - PULSE ABSENT [None]
  - PUPILLARY REFLEX IMPAIRED [None]
  - RESPIRATORY ACIDOSIS [None]
  - SHOCK [None]
  - SUICIDE ATTEMPT [None]
  - VENTRICULAR FIBRILLATION [None]
  - VENTRICULAR TACHYCARDIA [None]
